FAERS Safety Report 8765037 (Version 2)
Quarter: 2013Q2

REPORT INFORMATION
  Report Type: Spontaneous
  Country: US (occurrence: US)
  Receive Date: 20120903
  Receipt Date: 20130415
  Transmission Date: 20140414
  Serious: Yes (Hospitalization)
  Sender: FDA-Public Use
  Company Number: US-BIOGENIDEC-2012BI034809

PATIENT
  Age: 50 Year
  Sex: Female

DRUGS (3)
  1. AVONEX [Suspect]
     Indication: MULTIPLE SCLEROSIS
     Route: 030
  2. AVONEX [Suspect]
     Indication: MULTIPLE SCLEROSIS
     Route: 030
     Dates: start: 20030324, end: 201205
  3. AVONEX [Suspect]
     Indication: MULTIPLE SCLEROSIS
     Route: 030
     Dates: start: 201205

REACTIONS (9)
  - Hallucination [Recovered/Resolved]
  - Urinary tract infection [Recovered/Resolved]
  - Drug dose omission [Unknown]
  - Fall [Recovered/Resolved]
  - Local swelling [Not Recovered/Not Resolved]
  - Fractured coccyx [Recovered/Resolved]
  - Pain in extremity [Unknown]
  - Arthralgia [Not Recovered/Not Resolved]
  - Paraesthesia [Not Recovered/Not Resolved]
